FAERS Safety Report 9933380 (Version 2)
Quarter: 2014Q1

REPORT INFORMATION
  Report Type: Report from Study
  Country: US (occurrence: US)
  Receive Date: 20140228
  Receipt Date: 20140228
  Transmission Date: 20141002
  Serious: Yes (Other)
  Sender: FDA-Public Use
  Company Number: US-MYLANLABS-2013S1007714

PATIENT
  Age: 24 Year
  Sex: Female

DRUGS (6)
  1. AMNESTEEM CAPSULES [Suspect]
     Indication: ACNE CYSTIC
     Dates: start: 20120913, end: 201303
  2. AMNESTEEM CAPSULES [Suspect]
     Indication: ACNE CYSTIC
     Route: 048
     Dates: start: 20120913, end: 201303
  3. PHENERGAN [Concomitant]
  4. COMPAZINE [Concomitant]
  5. CODEINE [Concomitant]
  6. AMOXICILLIN [Concomitant]

REACTIONS (1)
  - Epistaxis [Not Recovered/Not Resolved]
